FAERS Safety Report 17043836 (Version 1)
Quarter: 2019Q4

REPORT INFORMATION
  Report Type: Spontaneous
  Country: US (occurrence: US)
  Receive Date: 20191115
  Receipt Date: 20191115
  Transmission Date: 20200122
  Serious: Yes (Death)
  Sender: FDA-Public Use
  Company Number: None

PATIENT
  Age: 86 Year
  Sex: Male
  Weight: 92.2 kg

DRUGS (1)
  1. WARFARIN [Suspect]
     Active Substance: WARFARIN

REACTIONS (5)
  - Hypertension [None]
  - Spontaneous haemorrhage [None]
  - Cerebrovascular accident [None]
  - Haemorrhagic stroke [None]
  - Ventricular fibrillation [None]

NARRATIVE: CASE EVENT DATE: 20190401
